FAERS Safety Report 21773016 (Version 1)
Quarter: 2022Q4

REPORT INFORMATION
  Report Type: Spontaneous
  Country: FR (occurrence: FR)
  Receive Date: 20221223
  Receipt Date: 20221223
  Transmission Date: 20230113
  Serious: Yes (Hospitalization)
  Sender: FDA-Public Use
  Company Number: None

PATIENT
  Age: 91 Year
  Sex: Female
  Weight: 70 kg

DRUGS (9)
  1. OMEPRAZOLE [Suspect]
     Active Substance: OMEPRAZOLE
     Indication: Product used for unknown indication
     Dosage: THERAPY START DATE : NASK , UNIT DOSE :  20 MG  , FREQUENCY TIME : 1 DAY
     Dates: end: 20221028
  2. SPIRONOLACTONE [Suspect]
     Active Substance: SPIRONOLACTONE
     Indication: Product used for unknown indication
     Dosage: THERAPY START DATE : NASK ,   UNIT DOSE :12.5 MG    , FREQUENCY TIME :1 DAY
     Dates: end: 20221028
  3. TOVIAZ [Suspect]
     Active Substance: FESOTERODINE FUMARATE
     Indication: Product used for unknown indication
     Dosage: THERAPY START DATE : NASK
     Dates: end: 20221027
  4. HYDROCHLOROTHIAZIDE [Suspect]
     Active Substance: HYDROCHLOROTHIAZIDE
     Indication: Product used for unknown indication
     Dosage: THERAPY START DATE : NASK , UNIT DOSE :  25 MG  , FREQUENCY TIME :  1 DAY
     Dates: end: 20221028
  5. POLYETHYLENE GLYCOLS [Suspect]
     Active Substance: POLYETHYLENE GLYCOLS
     Indication: Product used for unknown indication
     Dosage: UNIT DOSE : 50 MG   , FREQUENCY TIME :   1 DAY , THERAPY START DATE : NASK , MACROGOL (DISTEARATE DE
     Dates: end: 20221028
  6. ETIFOXINE [Suspect]
     Active Substance: ETIFOXINE
     Indication: Product used for unknown indication
     Dosage: THERAPY START DATE : NASK , UNIT DOSE : 50 MG   , FREQUENCY TIME : 1 DAY
     Dates: end: 20221028
  7. BILASTINE [Suspect]
     Active Substance: BILASTINE
     Indication: Product used for unknown indication
     Dosage: UNIT DOSE : 20 MG   , FREQUENCY TIME : 1 DAY  , THERAPY START DATE : NASK , FORM STRENGTH : 20 MG
     Dates: end: 20221028
  8. DOLIPRANE [Concomitant]
     Active Substance: ACETAMINOPHEN
     Indication: Product used for unknown indication
  9. ERGOCALCIFEROL [Concomitant]
     Active Substance: ERGOCALCIFEROL
     Indication: Product used for unknown indication

REACTIONS (1)
  - Urinary retention [Recovered/Resolved]

NARRATIVE: CASE EVENT DATE: 20221027
